FAERS Safety Report 14908864 (Version 1)
Quarter: 2018Q2

REPORT INFORMATION
  Report Type: Spontaneous
  Country: DE (occurrence: DE)
  Receive Date: 20180517
  Receipt Date: 20180517
  Transmission Date: 20180711
  Serious: Yes (Hospitalization, Other)
  Sender: FDA-Public Use
  Company Number: DE-PFIZER INC-2018195634

PATIENT
  Age: 81 Year
  Sex: Male
  Weight: 82 kg

DRUGS (8)
  1. THIAMINE. [Concomitant]
     Active Substance: THIAMINE
     Dosage: 100 ML, 2X/DAY (1-0-1-0)
     Route: 048
  2. DABIGATRAN [Suspect]
     Active Substance: DABIGATRAN
     Dosage: 110 MG, 2X/DAY (1-0-1-0)
     Route: 048
  3. BISOPROLOL [Suspect]
     Active Substance: BISOPROLOL
     Dosage: 5 MG, 2X/DAY (1-0-1-0)
     Route: 048
  4. LOSARTAN. [Suspect]
     Active Substance: LOSARTAN
     Dosage: 50 MG, 2X/DAY (1-0-1-0)
     Route: 048
  5. PANTOPRAZOL [Concomitant]
     Active Substance: PANTOPRAZOLE SODIUM
     Dosage: 40 MG, 1X/DAY (1-0-0-0)
     Route: 048
  6. POTASSIUM HYDROXIDE. [Concomitant]
     Active Substance: POTASSIUM HYDROXIDE
     Dosage: 1 DF, 1X/DAY (1-0-0-0)
     Route: 048
  7. NORVASC [Suspect]
     Active Substance: AMLODIPINE BESYLATE
     Dosage: 5 MG, 2X/DAY (1-0-1-0)
     Route: 048
  8. SIMVASTATIN. [Concomitant]
     Active Substance: SIMVASTATIN
     Dosage: 40 MG, 1X/DAY (0-0-1-0)
     Route: 048

REACTIONS (7)
  - Respiratory tract haemorrhage [Unknown]
  - Fall [Unknown]
  - Mucosal haemorrhage [Unknown]
  - Activated partial thromboplastin time prolonged [Unknown]
  - Glomerular filtration rate decreased [Unknown]
  - Haemoglobin decreased [Unknown]
  - Red blood cell count decreased [Unknown]

NARRATIVE: CASE EVENT DATE: 20151204
